FAERS Safety Report 6493444-8 (Version None)
Quarter: 2009Q4

REPORT INFORMATION
  Report Type: 
  Country: None (occurrence: None)
  Receive Date: 20091209
  Receipt Date: 20091202
  Transmission Date: 20100525
  Serious: Yes (Hospitalization)
  Sender: FDA-Public Use
  Company Number: 2009SP039405

PATIENT
  Age: 35 Year
  Sex: Female

DRUGS (3)
  1. DESLORATADINE [Suspect]
     Indication: HYPERSENSITIVITY
     Dosage: 5 MG;QD;PO; 2.5 MG; BID; PO
     Route: 048
     Dates: start: 20090803, end: 20090812
  2. DESLORATADINE [Suspect]
     Indication: HYPERSENSITIVITY
     Dosage: 5 MG;QD;PO; 2.5 MG; BID; PO
     Route: 048
     Dates: start: 20090813, end: 20090814
  3. INDERM [Concomitant]

REACTIONS (2)
  - DYSPNOEA [None]
  - PANIC ATTACK [None]
